FAERS Safety Report 10264179 (Version 1)
Quarter: 2014Q2

REPORT INFORMATION
  Report Type: Spontaneous
  Country: US (occurrence: None)
  Receive Date: 20140623
  Receipt Date: 20140623
  Transmission Date: 20141212
  Serious: Yes (Hospitalization, Disabling)
  Sender: FDA-Public Use
  Company Number: None

PATIENT
  Age: 50 Year
  Sex: Female

DRUGS (1)
  1. T-GEL [Suspect]
     Indication: DRUG THERAPY
     Dosage: ONCE DAILY
     Dates: start: 20130614, end: 20131215

REACTIONS (3)
  - Thrombosis [None]
  - Paralysis [None]
  - Exposure via partner [None]
